FAERS Safety Report 7520653-9 (Version None)
Quarter: 2011Q2

REPORT INFORMATION
  Report Type: 
  Country: None (occurrence: None)
  Receive Date: 20110603
  Receipt Date: 20110524
  Transmission Date: 20111010
  Serious: No
  Sender: FDA-Public Use
  Company Number: US-BIOGENIDEC-2011BI019650

PATIENT
  Age: 52 Year
  Sex: Female

DRUGS (1)
  1. AVONEX [Suspect]
     Indication: MULTIPLE SCLEROSIS
     Route: 030
     Dates: start: 20110523

REACTIONS (5)
  - MYALGIA [None]
  - ASTHENIA [None]
  - PERIPHERAL COLDNESS [None]
  - CHILLS [None]
  - POLLAKIURIA [None]
